FAERS Safety Report 25119987 (Version 1)
Quarter: 2025Q1

REPORT INFORMATION
  Report Type: Spontaneous
  Country: US (occurrence: US)
  Receive Date: 20250325
  Receipt Date: 20250325
  Transmission Date: 20250408
  Serious: No
  Sender: TONIX PHARMACEUTICALS
  Company Number: US-TONIX MEDICINES, INC.-2024TNX00004

PATIENT
  Age: 20 Year
  Sex: Female

DRUGS (11)
  1. ZEMBRACE SYMTOUCH [Suspect]
     Active Substance: SUMATRIPTAN SUCCINATE
     Indication: Headache
     Dosage: INJECT 1 PEN AS DIRECTED
     Route: 058
     Dates: start: 2022
  2. VITAMIN D3 [Concomitant]
     Active Substance: CHOLECALCIFEROL
  3. RIZATRIPTAN [Concomitant]
     Active Substance: RIZATRIPTAN
  4. GUANFACINE [Concomitant]
     Active Substance: GUANFACINE
  5. CALCIUM [Concomitant]
     Active Substance: CALCIUM
  6. MAXALT [Concomitant]
     Active Substance: RIZATRIPTAN BENZOATE
  7. QULIPTA [Concomitant]
     Active Substance: ATOGEPANT
  8. NURTEC ODT [Concomitant]
     Active Substance: RIMEGEPANT SULFATE
  9. UBRELVY [Concomitant]
     Active Substance: UBROGEPANT
  10. FLUOXETINE [Concomitant]
     Active Substance: FLUOXETINE HYDROCHLORIDE
  11. VITAMIN C [Concomitant]
     Active Substance: ASCORBIC ACID

REACTIONS (1)
  - Drug ineffective [Unknown]
